FAERS Safety Report 5210551-8 (Version None)
Quarter: 2007Q1

REPORT INFORMATION
  Report Type: 
  Country: None (occurrence: None)
  Receive Date: 20070117
  Receipt Date: 20070105
  Transmission Date: 20070707
  Serious: Yes (Hospitalization)
  Sender: FDA-Public Use
  Company Number: FR-ROCHE-477293

PATIENT
  Age: 82 Year
  Sex: Female
  Weight: 98 kg

DRUGS (7)
  1. NICARDIPINE HCL [Suspect]
     Indication: HYPERTENSION
     Route: 048
     Dates: end: 20061019
  2. ALDACTONE [Suspect]
     Indication: DRUG USE FOR UNKNOWN INDICATION
     Dosage: DOSAGE REGIMEN REPORTED AS 25 MG, UID/EVERY DAY
     Route: 048
     Dates: end: 20061018
  3. ESIDRIX [Concomitant]
  4. HALDOL [Concomitant]
  5. DAFALGAN [Concomitant]
  6. SERETIDE [Concomitant]
     Dosage: DRUG NAME REPORTED AS SERETIDE MDI
  7. ZOLPIDEM TARTRATE [Concomitant]
     Dates: start: 20061004

REACTIONS (7)
  - CREATININE RENAL CLEARANCE DECREASED [None]
  - DIZZINESS [None]
  - FALL [None]
  - HEADACHE [None]
  - HYPOTONIA [None]
  - MALAISE [None]
  - ORTHOSTATIC HYPOTENSION [None]
